FAERS Safety Report 8236329-9 (Version None)
Quarter: 2012Q1

REPORT INFORMATION
  Report Type: 
  Country: None (occurrence: None)
  Receive Date: 20120327
  Receipt Date: 20120316
  Transmission Date: 20120608
  Serious: Yes (Death)
  Sender: FDA-Public Use
  Company Number: JP-JNJFOC-20120306490

PATIENT
  Age: 64 Year
  Sex: Female

DRUGS (3)
  1. REMICADE [Suspect]
     Route: 042
     Dates: start: 20101115
  2. STEROIDS NOS [Concomitant]
     Route: 065
     Dates: end: 20110501
  3. REMICADE [Suspect]
     Indication: CROHN'S DISEASE
     Route: 042
     Dates: start: 20111208

REACTIONS (3)
  - COMPLETED SUICIDE [None]
  - DEPRESSION [None]
  - WEIGHT DECREASED [None]
